FAERS Safety Report 17365241 (Version 1)
Quarter: 2020Q1

REPORT INFORMATION
  Report Type: Spontaneous
  Country: CA (occurrence: CA)
  Receive Date: 20200204
  Receipt Date: 20200204
  Transmission Date: 20200409
  Serious: Yes (Hospitalization, Other)
  Sender: FDA-Public Use
  Company Number: CA-AUROBINDO-AUR-APL-2020-004985

PATIENT
  Age: 62 Year
  Sex: Male

DRUGS (10)
  1. ALENDRONATE SODIUM. [Concomitant]
     Active Substance: ALENDRONATE SODIUM
     Indication: BONE DISORDER
     Dosage: 70 MILLIGRAM, EVERY WEEK
     Route: 065
  2. ROSUVASTATIN CALCIUM. [Concomitant]
     Active Substance: ROSUVASTATIN CALCIUM
     Indication: PRODUCT USED FOR UNKNOWN INDICATION
     Dosage: 10 MILLIGRAM, ONCE A DAY
     Route: 048
  3. METFORMIN [Suspect]
     Active Substance: METFORMIN HYDROCHLORIDE
     Indication: DIABETES MELLITUS
     Dosage: 500 MILLIGRAM, TWO TIMES A DAY
     Route: 065
  4. METOPROLOL. [Suspect]
     Active Substance: METOPROLOL
     Indication: PRODUCT USED FOR UNKNOWN INDICATION
     Dosage: 50 MILLIGRAM, TWO TIMES A DAY
     Route: 065
  5. SANDOSTATIN [Suspect]
     Active Substance: OCTREOTIDE ACETATE
     Indication: MALIGNANT NEOPLASM OF THYMUS
     Dosage: UNK
     Route: 030
  6. METFORMIN [Suspect]
     Active Substance: METFORMIN HYDROCHLORIDE
     Indication: BLOOD GLUCOSE INCREASED
  7. PREDNISONE. [Concomitant]
     Active Substance: PREDNISONE
     Indication: PRODUCT USED FOR UNKNOWN INDICATION
     Dosage: 4 DOSAGE FORM
     Route: 065
  8. METFORMIN [Suspect]
     Active Substance: METFORMIN HYDROCHLORIDE
     Indication: HYPERSENSITIVITY
     Dosage: 500 MILLIGRAM, FOUR TIMES/DAY
     Route: 065
  9. SANDOSTATIN [Suspect]
     Active Substance: OCTREOTIDE ACETATE
     Dosage: 20 MILLIGRAM EVERY MONTH
     Route: 030
  10. LANSOPRAZOLE. [Concomitant]
     Active Substance: LANSOPRAZOLE
     Indication: PRODUCT USED FOR UNKNOWN INDICATION
     Dosage: 30 MILLIGRAM, ONCE A DAY
     Route: 065

REACTIONS (27)
  - Malignant neoplasm progression [Unknown]
  - Blood pressure decreased [Unknown]
  - Intestinal ischaemia [Unknown]
  - Product use in unapproved indication [Unknown]
  - Bronchitis [Unknown]
  - Thyroid function test abnormal [Unknown]
  - Blood pressure fluctuation [Unknown]
  - Atrial fibrillation [Unknown]
  - Cholelithiasis [Unknown]
  - Heart rate increased [Unknown]
  - Wheezing [Unknown]
  - Malignant neoplasm of thymus [Unknown]
  - Back pain [Unknown]
  - Blood urine present [Unknown]
  - Body temperature decreased [Unknown]
  - Colitis [Unknown]
  - Haemorrhage urinary tract [Unknown]
  - Pain [Unknown]
  - Productive cough [Unknown]
  - Blood glucose increased [Unknown]
  - Weight decreased [Unknown]
  - Arthralgia [Unknown]
  - Pallor [Unknown]
  - Abdominal distension [Unknown]
  - Arthritis [Unknown]
  - Blood pressure increased [Unknown]
  - Irritability [Unknown]
